FAERS Safety Report 5382364-8 (Version None)
Quarter: 2007Q3

REPORT INFORMATION
  Report Type: 
  Country: None (occurrence: None)
  Receive Date: 20070709
  Receipt Date: 20070702
  Transmission Date: 20080115
  Serious: Yes (Hospitalization)
  Sender: FDA-Public Use
  Company Number: GB-ABBOTT-04P-167-0270887-00

PATIENT
  Age: 68 Year
  Sex: Female
  Weight: 72 kg

DRUGS (10)
  1. HUMIRA [Suspect]
     Indication: DRUG USE FOR UNKNOWN INDICATION
     Route: 058
     Dates: start: 20040301, end: 20040701
  2. METHOTREXATE [Concomitant]
     Indication: RHEUMATOID ARTHRITIS
     Route: 048
     Dates: end: 20040505
  3. OMEPRAZOLE [Concomitant]
     Indication: DRUG USE FOR UNKNOWN INDICATION
     Route: 048
  4. CLOPIDOGREL [Concomitant]
     Indication: DRUG USE FOR UNKNOWN INDICATION
     Route: 048
  5. ATORVASTATIN [Concomitant]
     Indication: HYPERCHOLESTEROLAEMIA
     Route: 048
  6. ATENOLOL [Concomitant]
     Indication: HYPERTENSION
  7. CEPHALEXIN [Concomitant]
     Indication: URINARY TRACT INFECTION
     Route: 048
  8. DIDRONEL [Concomitant]
     Indication: RHEUMATOID ARTHRITIS
     Route: 048
  9. AMITRIPTYLINE HCL [Concomitant]
     Indication: RHEUMATOID ARTHRITIS
     Route: 048
  10. PREDNISOLONE [Concomitant]
     Indication: RHEUMATOID ARTHRITIS
     Route: 048

REACTIONS (3)
  - ABDOMINAL PAIN [None]
  - PLEURAL EFFUSION [None]
  - SPLENIC INFARCTION [None]
